FAERS Safety Report 14092633 (Version 3)
Quarter: 2018Q1

REPORT INFORMATION
  Report Type: Report from Study
  Country: CO (occurrence: CO)
  Receive Date: 20171016
  Receipt Date: 20180306
  Transmission Date: 20180508
  Serious: Yes (Death, Hospitalization, Other)
  Sender: FDA-Public Use
  Company Number: CO-JNJFOC-20171012701

PATIENT
  Age: 73 Year
  Sex: Male

DRUGS (1)
  1. XARELTO [Suspect]
     Active Substance: RIVAROXABAN
     Indication: PULMONARY EMBOLISM
     Route: 048
     Dates: start: 20130926, end: 20171015

REACTIONS (4)
  - Pyrexia [Not Recovered/Not Resolved]
  - Disease progression [Fatal]
  - Lung infection [Unknown]
  - Cardiac failure [Fatal]

NARRATIVE: CASE EVENT DATE: 20171007
